FAERS Safety Report 5315327-9 (Version None)
Quarter: 2007Q2

REPORT INFORMATION
  Report Type: 
  Country: None (occurrence: None)
  Receive Date: 20070502
  Receipt Date: 20070420
  Transmission Date: 20071010
  Serious: Yes (Other)
  Sender: FDA-Public Use
  Company Number: US-PFIZER INC-2007033184

PATIENT
  Sex: Female
  Weight: 96.363 kg

DRUGS (15)
  1. CHANTIX [Suspect]
     Indication: EX-SMOKER
  2. PREDNISONE TAB [Suspect]
     Indication: SYSTEMIC LUPUS ERYTHEMATOSUS
  3. PREDNISONE TAB [Suspect]
     Indication: RHEUMATOID ARTHRITIS
  4. PREDNISONE TAB [Suspect]
     Indication: PSORIASIS
  5. KEFLEX [Concomitant]
     Indication: KIDNEY INFECTION
  6. PROVENTIL INHALER [Concomitant]
     Route: 055
  7. MUCINEX [Concomitant]
  8. VERAPAMIL [Concomitant]
     Dosage: DAILY DOSE:180MG
  9. GLIPIZIDE/METFORMIN HYDROCHLORIDE [Concomitant]
  10. CLONAZEPAM [Concomitant]
     Indication: ANXIETY
  11. METOPROLOL SUCCINATE [Concomitant]
  12. LISINOPRIL [Concomitant]
  13. CLONIDINE [Concomitant]
     Indication: HYPERTENSION
  14. HYDROXYZINE PAMOATE [Concomitant]
     Indication: ANXIETY
  15. TYLOX [Concomitant]
     Indication: PAIN

REACTIONS (6)
  - BONE PAIN [None]
  - DYSPNOEA [None]
  - INCREASED APPETITE [None]
  - PSORIASIS [None]
  - RHEUMATOID ARTHRITIS [None]
  - SYSTEMIC LUPUS ERYTHEMATOSUS [None]
